FAERS Safety Report 17802468 (Version 1)
Quarter: 2020Q2

REPORT INFORMATION
  Report Type: Spontaneous
  Country: US (occurrence: US)
  Receive Date: 20200519
  Receipt Date: 20200519
  Transmission Date: 20200714
  Serious: No
  Sender: FDA-Public Use
  Company Number: US-NOVEN PHARMACEUTICALS, INC.-US2019000711

PATIENT

DRUGS (4)
  1. DAYTRANA [Suspect]
     Active Substance: METHYLPHENIDATE
     Dosage: 40 MG, USED 30 MG AND 10 MG PATCH TOGETHER
     Dates: start: 20191213
  2. DAYTRANA [Suspect]
     Active Substance: METHYLPHENIDATE
     Dosage: 40 MG, PRESCRIBED TO APPLY 30 MG AND 10 MG PATCHES TOGETHER
     Route: 062
     Dates: start: 2018, end: 201912
  3. DAYTRANA [Suspect]
     Active Substance: METHYLPHENIDATE
     Dosage: 50 MG, APPLYING THREE PATCHES (30 MG, 10 MG, 10 MG PATCH) AT A TIME
     Route: 062
     Dates: start: 201912, end: 20191212
  4. DAYTRANA [Suspect]
     Active Substance: METHYLPHENIDATE
     Indication: ATTENTION DEFICIT HYPERACTIVITY DISORDER
     Dosage: 10 MG, UNKNOWN
     Route: 062
     Dates: start: 2017, end: 2018

REACTIONS (3)
  - Therapeutic product effect decreased [Recovering/Resolving]
  - Off label use [Not Recovered/Not Resolved]
  - Educational problem [Recovering/Resolving]

NARRATIVE: CASE EVENT DATE: 2018
